FAERS Safety Report 22536880 (Version 1)
Quarter: 2023Q2

REPORT INFORMATION
  Report Type: Spontaneous
  Country: US (occurrence: None)
  Receive Date: 20230606
  Receipt Date: 20230606
  Transmission Date: 20230721
  Serious: Yes (unspecified)
  Sender: FDA-Public Use
  Company Number: None

PATIENT
  Age: 58 Year
  Weight: 75.66 kg

DRUGS (1)
  1. IVERMECTIN [Suspect]
     Active Substance: IVERMECTIN
     Dosage: FREQUENCY : DAILY;?
     Route: 048

REACTIONS (4)
  - Product prescribing issue [None]
  - Product dispensing error [None]
  - Incorrect dose administered [None]
  - Confusional state [None]

NARRATIVE: CASE EVENT DATE: 20230515
